FAERS Safety Report 12892310 (Version 6)
Quarter: 2017Q2

REPORT INFORMATION
  Report Type: Spontaneous
  Country: US (occurrence: US)
  Receive Date: 20161028
  Receipt Date: 20170417
  Transmission Date: 20170830
  Serious: Yes (Congenital Anomaly, Other)
  Sender: FDA-Public Use
  Company Number: PHEH2016US027885

PATIENT
  Sex: Female

DRUGS (1)
  1. ZOFRAN [Suspect]
     Active Substance: ONDANSETRON HYDROCHLORIDE
     Indication: FOETAL EXPOSURE DURING PREGNANCY
     Dosage: MOTHER DOSE: 4 MG, TID
     Route: 064

REACTIONS (36)
  - Otitis media chronic [Recovered/Resolved]
  - Candida infection [Unknown]
  - Conjunctivitis [Unknown]
  - Oropharyngeal pain [Unknown]
  - Rash [Unknown]
  - Otorrhoea [Recovered/Resolved]
  - Ear infection [Unknown]
  - Rhinitis [Unknown]
  - Herpangina [Unknown]
  - Micturition urgency [Unknown]
  - Selective eating disorder [Unknown]
  - Abnormal weight gain [Unknown]
  - Pyrexia [Unknown]
  - Deafness [Unknown]
  - Bradycardia neonatal [Unknown]
  - Sleep disorder [Unknown]
  - Arthropod bite [Unknown]
  - Cerumen impaction [Unknown]
  - Folliculitis [Unknown]
  - Constipation [Unknown]
  - Infantile apnoea [Unknown]
  - Hyperbilirubinaemia neonatal [Unknown]
  - Jaundice neonatal [Unknown]
  - Injury [Unknown]
  - Middle ear effusion [Unknown]
  - Bronchitis [Unknown]
  - Pollakiuria [Unknown]
  - Headache [Unknown]
  - Cleft palate [Recovered/Resolved]
  - Foetal exposure during pregnancy [Unknown]
  - Bronchial hyperreactivity [Recovered/Resolved]
  - Asthma [Unknown]
  - Urinary tract infection [Unknown]
  - Otitis media acute [Unknown]
  - Otitis externa [Unknown]
  - Irritability [Unknown]
